FAERS Safety Report 4619027-X (Version None)
Quarter: 2005Q1

REPORT INFORMATION
  Report Type: 
  Country: None (occurrence: None)
  Receive Date: 20050317
  Receipt Date: 20050317
  Transmission Date: 20050727
  Serious: Yes (Hospitalization, Disabling)
  Sender: FDA-Public Use
  Company Number: None

PATIENT
  Age: 38 Year
  Sex: Female
  Weight: 58.9676 kg

DRUGS (3)
  1. VIOXX [Suspect]
     Indication: CEREBROVASCULAR ACCIDENT
     Dosage: 25 MG    QD-BID PRN
     Dates: start: 20020101, end: 20041010
  2. VIOXX [Suspect]
     Indication: COMPLICATED MIGRAINE
     Dosage: 25 MG    QD-BID PRN
     Dates: start: 20020101, end: 20041010
  3. VIOXX [Suspect]
     Indication: TRANSIENT ISCHAEMIC ATTACK
     Dosage: 25 MG    QD-BID PRN
     Dates: start: 20020101, end: 20041010

REACTIONS (6)
  - ASTHENIA [None]
  - COMPLICATED MIGRAINE [None]
  - CONFUSIONAL STATE [None]
  - DYSARTHRIA [None]
  - FALL [None]
  - HEADACHE [None]
